FAERS Safety Report 9015636 (Version 1)
Quarter: 2013Q1

REPORT INFORMATION
  Report Type: Spontaneous
  Country: JP (occurrence: None)
  Receive Date: 20130102
  Receipt Date: 20130102
  Transmission Date: 20140127
  Serious: Yes (Death, Hospitalization)
  Sender: FDA-Public Use
  Company Number: VAL_01205_2012

PATIENT
  Age: 68 Year
  Sex: Female

DRUGS (2)
  1. CARBAMAZEPINE [Suspect]
     Indication: GRAND MAL CONVULSION
     Dosage: (DF)
  2. PILSICAINIDE [Concomitant]

REACTIONS (24)
  - Dizziness [None]
  - Heart rate decreased [None]
  - Anaemia [None]
  - Cardioactive drug level increased [None]
  - Haematuria [None]
  - Proteinuria [None]
  - Atrial fibrillation [None]
  - Renal impairment [None]
  - Tubulointerstitial nephritis [None]
  - Decreased appetite [None]
  - Malaise [None]
  - Uraemic gastropathy [None]
  - Haemodialysis [None]
  - Urinary tract infection [None]
  - Device related infection [None]
  - Hypoglycaemia [None]
  - Septic shock [None]
  - Hepatic necrosis [None]
  - Hepatocellular injury [None]
  - Pulmonary fibrosis [None]
  - Cell-mediated cytotoxicity [None]
  - Adrenalitis [None]
  - Adrenal insufficiency [None]
  - Multi-organ disorder [None]
